FAERS Safety Report 11984680 (Version 5)
Quarter: 2016Q2

REPORT INFORMATION
  Report Type: Spontaneous
  Country: IT (occurrence: IT)
  Receive Date: 20160201
  Receipt Date: 20160408
  Transmission Date: 20160815
  Serious: Yes (Death, Other)
  Sender: FDA-Public Use
  Company Number: IT-OTSUKA-2016_002526

PATIENT
  Age: 58 Year
  Sex: Male

DRUGS (11)
  1. SAMSCA [Suspect]
     Active Substance: TOLVAPTAN
     Indication: HYPONATRAEMIA
     Dosage: 15 MG, QD
     Route: 048
     Dates: start: 20160120, end: 20160120
  2. SAMSCA [Suspect]
     Active Substance: TOLVAPTAN
     Dosage: 10 MG, QD
     Route: 048
     Dates: start: 20160116, end: 20160119
  3. SAMSCA [Suspect]
     Active Substance: TOLVAPTAN
     Dosage: 7.5 MG, QD
     Route: 048
     Dates: start: 20160122, end: 20160122
  4. SAMSCA [Suspect]
     Active Substance: TOLVAPTAN
     Dosage: 10 MG, QD
     Route: 048
     Dates: start: 20160123, end: 20160123
  5. XANAX [Concomitant]
     Active Substance: ALPRAZOLAM
     Indication: ANXIETY DISORDER
     Dosage: UNK
     Route: 065
     Dates: start: 1995
  6. SAMSCA [Suspect]
     Active Substance: TOLVAPTAN
     Dosage: 15 MG, QD
     Route: 048
     Dates: start: 20160113, end: 20160113
  7. SAMSCA [Suspect]
     Active Substance: TOLVAPTAN
     Dosage: 7.5 MG, QD
     Route: 048
     Dates: start: 20160114, end: 20160115
  8. SAMSCA [Suspect]
     Active Substance: TOLVAPTAN
     Dosage: 10 MG, QD
     Route: 048
     Dates: start: 20160121, end: 20160121
  9. SAMSCA [Suspect]
     Active Substance: TOLVAPTAN
     Dosage: 7.5 MG, QD
     Route: 048
     Dates: start: 20160124, end: 20160124
  10. CORDARONE [Concomitant]
     Active Substance: AMIODARONE HYDROCHLORIDE
     Indication: ATRIAL FIBRILLATION
     Dosage: UNK
     Route: 065
     Dates: start: 1995
  11. CYMBALTA [Concomitant]
     Active Substance: DULOXETINE HYDROCHLORIDE
     Indication: ANXIETY DISORDER
     Dosage: UNK
     Route: 065
     Dates: start: 1995

REACTIONS (4)
  - Adenocarcinoma of colon [Fatal]
  - Prescribed underdose [Unknown]
  - Cholecystitis [Not Recovered/Not Resolved]
  - Disease progression [Fatal]

NARRATIVE: CASE EVENT DATE: 20150824
